FAERS Safety Report 23526896 (Version 3)
Quarter: 2024Q2

REPORT INFORMATION
  Report Type: Report from Study
  Country: PT (occurrence: PT)
  Receive Date: 20240215
  Receipt Date: 20240423
  Transmission Date: 20240715
  Serious: Yes (Hospitalization, Other)
  Sender: FDA-Public Use
  Company Number: PT-SA-SAC20240213000307

PATIENT
  Age: 42 Year
  Sex: Male

DRUGS (5)
  1. ALEMTUZUMAB [Suspect]
     Active Substance: ALEMTUZUMAB
     Indication: T-cell prolymphocytic leukaemia
     Dosage: 3 MG, 1X (2H INFUSION)
     Route: 042
     Dates: start: 20240123, end: 20240123
  2. ALEMTUZUMAB [Suspect]
     Active Substance: ALEMTUZUMAB
     Dosage: 10 MG, 1X (2H INFUSION)
     Route: 042
     Dates: start: 20240124, end: 20240124
  3. ALEMTUZUMAB [Suspect]
     Active Substance: ALEMTUZUMAB
     Dosage: 3 MG, 1X
     Route: 042
     Dates: start: 20240214, end: 20240214
  4. ALEMTUZUMAB [Suspect]
     Active Substance: ALEMTUZUMAB
     Dosage: 10 MG, 1X
     Route: 042
     Dates: start: 20240215, end: 20240215
  5. ALEMTUZUMAB [Suspect]
     Active Substance: ALEMTUZUMAB
     Dosage: 30 MG, 1X
     Route: 042
     Dates: start: 20240216, end: 20240216

REACTIONS (2)
  - Febrile neutropenia [Unknown]
  - Condition aggravated [Unknown]

NARRATIVE: CASE EVENT DATE: 20240124
